FAERS Safety Report 13906161 (Version 1)
Quarter: 2017Q3

REPORT INFORMATION
  Report Type: Spontaneous
  Country: BR (occurrence: BR)
  Receive Date: 20170825
  Receipt Date: 20170825
  Transmission Date: 20171127
  Serious: Yes (Other)
  Sender: FDA-Public Use
  Company Number: BR-ELI_LILLY_AND_COMPANY-BR201708008529

PATIENT
  Age: 0 Day
  Sex: Male

DRUGS (4)
  1. PURAN [Concomitant]
     Active Substance: LEVOTHYROXINE SODIUM
     Indication: HYPOTHYROIDISM
     Dosage: UNK, UNKNOWN
  2. HUMULIN N [Suspect]
     Active Substance: INSULIN HUMAN
     Dosage: 6 IU, EACH EVENING
  3. HUMULIN N [Suspect]
     Active Substance: INSULIN HUMAN
     Indication: GESTATIONAL DIABETES
     Dosage: 10 IU, EACH MORNING
  4. MATERNA                            /02266601/ [Concomitant]
     Active Substance: MINERALS\VITAMINS
     Indication: PRODUCT USED FOR UNKNOWN INDICATION
     Dosage: UNK, UNKNOWN

REACTIONS (4)
  - Large for dates baby [Unknown]
  - Hypoglycaemia [Recovered/Resolved]
  - Exposure during pregnancy [Recovered/Resolved]
  - Exposure during breast feeding [Unknown]

NARRATIVE: CASE EVENT DATE: 20170729
